FAERS Safety Report 18002100 (Version 1)
Quarter: 2020Q3

REPORT INFORMATION
  Report Type: Report from Study
  Country: None (occurrence: US)
  Receive Date: 20200710
  Receipt Date: 20200710
  Transmission Date: 20201103
  Serious: Yes (Other)
  Sender: FDA-Public Use
  Company Number: US-ABBVIE-20K-163-3473753-00

PATIENT
  Sex: Male

DRUGS (1)
  1. IMBRUVICA [Suspect]
     Active Substance: IBRUTINIB
     Indication: CHRONIC LYMPHOCYTIC LEUKAEMIA (IN REMISSION)
     Route: 048
     Dates: start: 20180307

REACTIONS (6)
  - Pneumonia staphylococcal [Unknown]
  - Wound [Unknown]
  - Spinal fracture [Unknown]
  - Hand fracture [Unknown]
  - Hepatic cirrhosis [Unknown]
  - Cardiomegaly [Unknown]
